FAERS Safety Report 7704726-3 (Version None)
Quarter: 2011Q3

REPORT INFORMATION
  Report Type: 
  Country: None (occurrence: None)
  Receive Date: 20110823
  Receipt Date: 20110816
  Transmission Date: 20111222
  Serious: Yes (Hospitalization, Other)
  Sender: FDA-Public Use
  Company Number: PHHY2011GB73483

PATIENT
  Sex: Male

DRUGS (1)
  1. MIRTAZAPINE [Suspect]
     Dosage: 30 MG, UNK

REACTIONS (3)
  - FALL [None]
  - ATONIC SEIZURES [None]
  - CONVULSION [None]
